FAERS Safety Report 15277827 (Version 1)
Quarter: 2018Q3

REPORT INFORMATION
  Report Type: Spontaneous
  Country: US (occurrence: US)
  Receive Date: 20180814
  Receipt Date: 20180814
  Transmission Date: 20181010
  Serious: Yes (Hospitalization)
  Sender: FDA-Public Use
  Company Number: US-TEVA-2018-US-943456

PATIENT
  Age: 68 Year
  Sex: Female

DRUGS (16)
  1. WARFARIN [Suspect]
     Active Substance: WARFARIN
     Indication: PULMONARY EMBOLISM
  2. CEFTRIAXONE. [Suspect]
     Active Substance: CEFTRIAXONE
     Dosage: SINGLE DOSE
     Route: 030
  3. ESCITALOPRAM [Concomitant]
     Active Substance: ESCITALOPRAM OXALATE
     Route: 065
  4. WARFARIN [Suspect]
     Active Substance: WARFARIN
     Indication: DEEP VEIN THROMBOSIS
     Route: 065
  5. CEFTRIAXONE. [Suspect]
     Active Substance: CEFTRIAXONE
     Indication: URINARY TRACT INFECTION
     Route: 042
  6. ATORVASTATIN [Concomitant]
     Active Substance: ATORVASTATIN
     Route: 065
  7. VITAMIN K [Suspect]
     Active Substance: PHYTONADIONE
     Dosage: AT PRESENTATION
     Route: 048
  8. VITAMIN K [Suspect]
     Active Substance: PHYTONADIONE
     Dosage: BEFORE TRANSFER TO ER
     Route: 048
  9. VITAMIN K [Suspect]
     Active Substance: PHYTONADIONE
     Route: 048
  10. ACETAMINOPHEN. [Concomitant]
     Active Substance: ACETAMINOPHEN
     Route: 065
  11. PHYTONADIONE. [Suspect]
     Active Substance: PHYTONADIONE
     Route: 065
  12. INSULIN GLARGINE [Concomitant]
     Active Substance: INSULIN GLARGINE
     Indication: DIABETES MELLITUS
     Route: 065
  13. LIDOCAINE. [Concomitant]
     Active Substance: LIDOCAINE
     Route: 065
  14. CEFEPIME [Suspect]
     Active Substance: CEFEPIME HYDROCHLORIDE
     Indication: URINARY TRACT INFECTION
     Route: 042
  15. VITAMIN K [Suspect]
     Active Substance: PHYTONADIONE
     Route: 042
  16. PANTOPRAZOLE [Concomitant]
     Active Substance: PANTOPRAZOLE
     Route: 065

REACTIONS (5)
  - Condition aggravated [Recovered/Resolved]
  - Diplopia [Unknown]
  - International normalised ratio fluctuation [Recovered/Resolved]
  - Vitamin K deficiency [Recovered/Resolved]
  - Haematemesis [Unknown]
